FAERS Safety Report 14341743 (Version 1)
Quarter: 2017Q4

REPORT INFORMATION
  Report Type: Spontaneous
  Country: US (occurrence: US)
  Receive Date: 20171229
  Receipt Date: 20171229
  Transmission Date: 20180321
  Serious: Yes (Hospitalization)
  Sender: FDA-Public Use
  Company Number: None

PATIENT
  Age: 58 Year
  Sex: Female
  Weight: 83 kg

DRUGS (2)
  1. DOXYCYCLINE. [Suspect]
     Active Substance: DOXYCYCLINE
     Indication: CELLULITIS
     Route: 048
     Dates: start: 20170922, end: 20170926
  2. SULFAMETHOXAZOLE/TRIMETHOPRIM [Suspect]
     Active Substance: SULFAMETHOXAZOLE\TRIMETHOPRIM
     Indication: CELLULITIS
     Route: 048
     Dates: start: 20170926, end: 20170927

REACTIONS (5)
  - Rash [None]
  - Rash pruritic [None]
  - Lymphadenopathy [None]
  - Angioedema [None]
  - Urticaria [None]

NARRATIVE: CASE EVENT DATE: 20170928
